FAERS Safety Report 17007444 (Version 1)
Quarter: 2019Q4

REPORT INFORMATION
  Report Type: Spontaneous
  Country: BR (occurrence: BR)
  Receive Date: 20191108
  Receipt Date: 20191108
  Transmission Date: 20200122
  Serious: Yes (Death, Hospitalization, Other)
  Sender: FDA-Public Use
  Company Number: BR-AUROBINDO-AUR-APL-2019-071277

PATIENT
  Age: 63 Year
  Sex: Male

DRUGS (4)
  1. PIPERACILLIN AND TAZOBACTAM [Suspect]
     Active Substance: PIPERACILLIN SODIUM\TAZOBACTAM SODIUM
     Indication: SEPSIS
     Dosage: UNK
     Route: 065
  2. FOLINIC ACID [Concomitant]
     Active Substance: LEUCOVORIN
     Indication: ADENOCARCINOMA
     Dosage: UNK
     Route: 065
  3. FLUOROURACIL. [Concomitant]
     Active Substance: FLUOROURACIL
     Indication: ADENOCARCINOMA
     Dosage: UNK
     Route: 065
  4. LEUCOVORIN. [Concomitant]
     Active Substance: LEUCOVORIN
     Indication: ADENOCARCINOMA
     Dosage: UNK
     Route: 065

REACTIONS (20)
  - Respiratory distress [Fatal]
  - Fatigue [Fatal]
  - Vision blurred [Fatal]
  - Dizziness [Fatal]
  - Pulseless electrical activity [Fatal]
  - Eyelid ptosis [Fatal]
  - Agitation [Fatal]
  - Condition aggravated [Fatal]
  - Paraparesis [Fatal]
  - Areflexia [Fatal]
  - Apraxia [Fatal]
  - Intestinal obstruction [Fatal]
  - Cardiac arrest [Fatal]
  - Vomiting [Fatal]
  - Abdominal pain [Fatal]
  - Headache [Fatal]
  - Ophthalmoplegia [Fatal]
  - Botulism [Fatal]
  - Photophobia [Fatal]
  - Hypoxia [Fatal]
